FAERS Safety Report 24072245 (Version 2)
Quarter: 2024Q3

REPORT INFORMATION
  Report Type: Spontaneous
  Country: CA (occurrence: CA)
  Receive Date: 20240710
  Receipt Date: 20240726
  Transmission Date: 20241017
  Serious: Yes (Hospitalization, Other)
  Sender: CELLTRION
  Company Number: CA-PFIZER INC-202400010549

PATIENT

DRUGS (6)
  1. INFLECTRA [Suspect]
     Active Substance: INFLIXIMAB-DYYB
     Indication: Ankylosing spondylitis
     Dosage: 5 MG/KG, EVERY 6 WEEKS (INDUCTION WEEKS 0, 2, 6 MAINTENANCE Q 6 WEEKS)
     Route: 042
     Dates: start: 20231026
  2. INFLECTRA [Suspect]
     Active Substance: INFLIXIMAB-DYYB
     Dosage: 5 MG/KG, EVERY 6 WEEKS
     Route: 042
     Dates: start: 20231208
  3. INFLECTRA [Suspect]
     Active Substance: INFLIXIMAB-DYYB
     Dosage: 5 MG/KG, EVERY 6 WEEKS
     Route: 042
     Dates: start: 20240116
  4. INFLECTRA [Suspect]
     Active Substance: INFLIXIMAB-DYYB
     Dosage: 5 MG/KG, EVERY 6 WEEKS (AFTER 5 WEEKS AND 6 DAYS)
     Route: 042
     Dates: start: 20240226
  5. INFLECTRA [Suspect]
     Active Substance: INFLIXIMAB-DYYB
     Dosage: 5 MG/KG, EVERY 6 WEEKS
     Route: 042
     Dates: start: 20240521
  6. INFLECTRA [Suspect]
     Active Substance: INFLIXIMAB-DYYB
     Dosage: 470 MG, AFTER 8 WEEKS (8 WEEKS AFTER LAST TREATMENT (WHICH TOOK PLACE ON 21MAY2024)
     Route: 042
     Dates: start: 20240716

REACTIONS (3)
  - Abdominal neoplasm [Recovered/Resolved]
  - Off label use [Unknown]
  - Skin papilloma [Recovering/Resolving]

NARRATIVE: CASE EVENT DATE: 20231026
